FAERS Safety Report 6215128-3 (Version None)
Quarter: 2009Q2

REPORT INFORMATION
  Report Type: 
  Country: None (occurrence: None)
  Receive Date: 20090604
  Receipt Date: 20090527
  Transmission Date: 20091009
  Serious: Yes (Hospitalization)
  Sender: FDA-Public Use
  Company Number: AU-PURDUE-USA-2009-0038371

PATIENT
  Age: 80 Year
  Sex: Male

DRUGS (8)
  1. OXYCONTIN [Suspect]
     Indication: DRUG USE FOR UNKNOWN INDICATION
     Dosage: 20 MG, DAILY
     Route: 048
     Dates: start: 20081209, end: 20081211
  2. ACTONEL WITH CALCIUM (COPACKAGED) [Concomitant]
  3. ALLOPURINOL [Concomitant]
  4. CLONAZEPAM [Concomitant]
  5. EPILIM [Concomitant]
  6. MEGA B                             /02048801/ [Concomitant]
  7. PRAVASTATIN [Concomitant]
  8. SLOW-K [Concomitant]

REACTIONS (1)
  - DELIRIUM [None]
